FAERS Safety Report 9931600 (Version 2)
Quarter: 2014Q1

REPORT INFORMATION
  Report Type: Spontaneous
  Country: GB (occurrence: None)
  Receive Date: 20140224
  Receipt Date: 20140328
  Transmission Date: 20141002
  Serious: Yes (Other)
  Sender: FDA-Public Use
  Company Number: AUR-APL-2014-01948

PATIENT
  Age: 16 Year
  Sex: Female

DRUGS (4)
  1. OLANZAPINE (OLANZAPINE) [Suspect]
     Indication: AUTISM SPECTRUM DISORDER
  2. OLANZAPINE (OLANZAPINE) [Suspect]
     Indication: POST-TRAUMATIC STRESS DISORDER
  3. OLANZAPINE (OLANZAPINE) [Suspect]
     Indication: PSYCHOTIC DISORDER
  4. OLANZAPINE (OLANZAPINE) [Suspect]
     Indication: PSYCHOTIC DISORDER

REACTIONS (4)
  - Off label use [None]
  - Anxiety [None]
  - Hallucination, auditory [None]
  - Disease recurrence [None]
